FAERS Safety Report 8087118-X (Version None)
Quarter: 2012Q1

REPORT INFORMATION
  Report Type: 
  Country: None (occurrence: None)
  Receive Date: 20120128
  Receipt Date: 20110512
  Transmission Date: 20120608
  Serious: No
  Sender: FDA-Public Use
  Company Number: US-ABBOTT-11P-163-0725293-00

PATIENT
  Sex: Female
  Weight: 49.94 kg

DRUGS (6)
  1. LOSARTAN POTASSIUM [Concomitant]
     Indication: HYPERTENSION
     Route: 048
  2. LIALDA [Concomitant]
     Indication: CROHN'S DISEASE
  3. PREMARIN [Concomitant]
     Indication: HORMONE REPLACEMENT THERAPY
     Route: 048
  4. VITAMIN TAB [Concomitant]
     Indication: VITAMIN SUPPLEMENTATION
     Route: 048
  5. HUMIRA [Suspect]
     Indication: CROHN'S DISEASE
     Route: 058
     Dates: start: 20110201
  6. NEXIUM [Concomitant]
     Indication: GASTRIC DISORDER
     Route: 048

REACTIONS (1)
  - ALOPECIA [None]
